FAERS Safety Report 24761376 (Version 2)
Quarter: 2025Q1

REPORT INFORMATION
  Report Type: Spontaneous
  Country: PL (occurrence: PL)
  Receive Date: 20241220
  Receipt Date: 20250102
  Transmission Date: 20250408
  Serious: Yes (Life-Threatening, Hospitalization)
  Sender: PURDUE
  Company Number: PL-MYLANLABS-2024M1109269

PATIENT
  Age: 60 Year
  Sex: Male

DRUGS (4)
  1. BUPRENORPHINE [Suspect]
     Active Substance: BUPRENORPHINE
     Indication: Analgesic therapy
     Route: 062
  2. BUPRENORPHINE [Suspect]
     Active Substance: BUPRENORPHINE
     Indication: Analgesic therapy
     Route: 062
  3. PREGABALIN [Suspect]
     Active Substance: PREGABALIN
     Indication: Product used for unknown indication
     Route: 065
  4. AMITRIPTYLINE [Suspect]
     Active Substance: AMITRIPTYLINE
     Indication: Product used for unknown indication
     Route: 065

REACTIONS (2)
  - Suicide attempt [Unknown]
  - Drug abuse [Unknown]
